FAERS Safety Report 8715492 (Version 2)
Quarter: 2015Q2

REPORT INFORMATION
  Report Type: Report from Study
  Country: US (occurrence: US)
  Receive Date: 20120809
  Receipt Date: 20150629
  Transmission Date: 20150821
  Serious: Yes (Other)
  Sender: FDA-Public Use
  Company Number: US-ROCHE-1097728

PATIENT
  Sex: Male

DRUGS (23)
  1. TRIDIL [Concomitant]
     Active Substance: NITROGLYCERIN
     Route: 060
  2. COLACE [Concomitant]
     Active Substance: DOCUSATE SODIUM
     Route: 048
  3. NAPROXEN. [Concomitant]
     Active Substance: NAPROXEN
     Route: 048
  4. ECOTRIN [Concomitant]
     Active Substance: ASPIRIN
     Route: 048
  5. TRIDIL [Concomitant]
     Active Substance: NITROGLYCERIN
     Dosage: 1/150 G
     Route: 060
  6. PHENERGAN [Concomitant]
     Active Substance: PROMETHAZINE HYDROCHLORIDE
     Route: 042
  7. MORPHINE [Concomitant]
     Active Substance: MORPHINE
     Route: 058
  8. MORPHINE [Concomitant]
     Active Substance: MORPHINE
     Route: 042
  9. HEPARIN [Concomitant]
     Active Substance: HEPARIN SODIUM
     Route: 065
  10. ACETAMINOPHEN. [Concomitant]
     Active Substance: ACETAMINOPHEN
     Route: 048
  11. ATROPINE [Concomitant]
     Active Substance: ATROPINE
     Route: 065
  12. DILANTIN [Concomitant]
     Active Substance: PHENYTOIN
     Dosage: 3 IN AM AND 2 IN PM
     Route: 048
  13. ACTIVASE [Suspect]
     Active Substance: ALTEPLASE
     Indication: MYOCARDIAL INFARCTION
     Route: 065
  14. ATROPINE [Concomitant]
     Active Substance: ATROPINE
     Route: 065
  15. POTASSIUM CHLORIDE. [Concomitant]
     Active Substance: POTASSIUM CHLORIDE
     Route: 065
  16. MILK OF MAGNESIA [Concomitant]
     Active Substance: MAGNESIUM HYDROXIDE
     Route: 048
  17. LIDOCAINE. [Concomitant]
     Active Substance: LIDOCAINE
     Dosage: 2 % 5 ML SYRINGE
     Route: 065
  18. PHENERGAN [Concomitant]
     Active Substance: PROMETHAZINE HYDROCHLORIDE
     Route: 042
  19. ACTIVASE [Suspect]
     Active Substance: ALTEPLASE
     Indication: ANGINA UNSTABLE
     Route: 065
  20. HEPARIN [Concomitant]
     Active Substance: HEPARIN SODIUM
     Route: 065
  21. TRIDIL [Concomitant]
     Active Substance: NITROGLYCERIN
     Route: 060
  22. TYLENOL [Concomitant]
     Active Substance: ACETAMINOPHEN
  23. HALCION [Concomitant]
     Active Substance: TRIAZOLAM
     Route: 048

REACTIONS (11)
  - Angiopathy [Unknown]
  - Chest pain [Unknown]
  - Headache [Unknown]
  - Pulmonary congestion [Unknown]
  - Arthritis [Unknown]
  - Myocardial infarction [Unknown]
  - Orthopnoea [Unknown]
  - Atrial fibrillation [Unknown]
  - Seizure [Unknown]
  - Spondylitis [Unknown]
  - Arteriosclerosis [Unknown]
